FAERS Safety Report 19666043 (Version 1)
Quarter: 2021Q3

REPORT INFORMATION
  Report Type: Spontaneous
  Country: US (occurrence: US)
  Receive Date: 20210806
  Receipt Date: 20210806
  Transmission Date: 20211014
  Serious: Yes (Hospitalization)
  Sender: FDA-Public Use
  Company Number: None

PATIENT
  Age: 51 Year
  Sex: Female
  Weight: 59.4 kg

DRUGS (1)
  1. CISPLATIN. [Suspect]
     Active Substance: CISPLATIN
     Dates: end: 20210719

REACTIONS (5)
  - Salivary hypersecretion [None]
  - Oral pain [None]
  - Dysphagia [None]
  - Oropharyngeal pain [None]
  - Swelling [None]

NARRATIVE: CASE EVENT DATE: 20210724
